FAERS Safety Report 20207257 (Version 1)
Quarter: 2021Q4

REPORT INFORMATION
  Report Type: Spontaneous
  Country: BA (occurrence: BA)
  Receive Date: 20211220
  Receipt Date: 20211220
  Transmission Date: 20220304
  Serious: Yes (Other)
  Sender: FDA-Public Use
  Company Number: BA-NOVARTISPH-NVSC2021BA289087

PATIENT
  Sex: Female

DRUGS (3)
  1. RIBOCICLIB [Suspect]
     Active Substance: RIBOCICLIB
     Indication: Product used for unknown indication
     Dosage: 200 MG, TID
     Route: 065
     Dates: start: 201805
  2. EXEMESTANE [Concomitant]
     Active Substance: EXEMESTANE
     Indication: Product used for unknown indication
     Dosage: 25 MG, QD
     Route: 065
     Dates: start: 201805
  3. ZOLEDRONIC ACID [Concomitant]
     Active Substance: ZOLEDRONIC ACID
     Indication: Product used for unknown indication
     Dosage: UNK
     Route: 042
     Dates: start: 201407

REACTIONS (3)
  - Thrombocytopenia [Recovered/Resolved]
  - Haematotoxicity [Recovered/Resolved]
  - Neutropenia [Recovered/Resolved]
